FAERS Safety Report 4306914-5 (Version None)
Quarter: 2004Q1

REPORT INFORMATION
  Report Type: 
  Country: None (occurrence: None)
  Receive Date: 20040227
  Receipt Date: 20040227
  Transmission Date: 20041129
  Serious: No
  Sender: FDA-Public Use
  Company Number: None

PATIENT
  Age: 9 Year
  Sex: Female
  Weight: 34.0198 kg

DRUGS (6)
  1. OLANZAPINE [Suspect]
     Indication: AGGRESSION
     Dosage: 5 MG PO BID
     Route: 048
     Dates: start: 20031003
  2. OLANZAPINE [Suspect]
     Indication: SELF INJURIOUS BEHAVIOUR
     Dosage: 5 MG PO BID
     Route: 048
     Dates: start: 20031003
  3. GUANFACINE HCL [Concomitant]
  4. CLONIDINE [Concomitant]
  5. SERTRALINE HCL [Concomitant]
  6. LORATADINE [Concomitant]

REACTIONS (2)
  - BLOOD CHOLESTEROL INCREASED [None]
  - BLOOD GLUCOSE INCREASED [None]
